FAERS Safety Report 8135572-7 (Version None)
Quarter: 2012Q1

REPORT INFORMATION
  Report Type: 
  Country: None (occurrence: None)
  Receive Date: 20120214
  Receipt Date: 20120203
  Transmission Date: 20120608
  Serious: Yes (Other)
  Sender: FDA-Public Use
  Company Number: PHHY2010US86663

PATIENT
  Sex: Male
  Weight: 93.4 kg

DRUGS (17)
  1. OXYCODONE HCL [Concomitant]
  2. LIDODERM [Concomitant]
  3. ZYRTEC [Concomitant]
  4. TASIGNA [Suspect]
     Indication: CHRONIC MYELOID LEUKAEMIA
     Dosage: 200 MG, DAILY
     Route: 048
     Dates: start: 20100127
  5. ASPIRIN [Concomitant]
  6. TRAZODONE HCL [Concomitant]
  7. CRESTOR [Concomitant]
  8. METOPROLOL - SLOW RELEASE [Concomitant]
  9. SEROQUEL [Concomitant]
     Dosage: UNK UKN, UNK
  10. GABAPENTIN [Concomitant]
  11. XANAX [Concomitant]
  12. NASONEX [Concomitant]
  13. KLOR-CON [Concomitant]
     Dosage: 10 MEQ, QD
     Route: 048
  14. MORPHINE [Concomitant]
  15. METFORMIN HCL [Concomitant]
  16. M.V.I. [Concomitant]
  17. CELEXA [Concomitant]

REACTIONS (14)
  - RASH [None]
  - MEMORY IMPAIRMENT [None]
  - HAEMATOCHEZIA [None]
  - DYSPNOEA [None]
  - FATIGUE [None]
  - BACK PAIN [None]
  - NAUSEA [None]
  - STOMATITIS [None]
  - CONSTIPATION [None]
  - SWELLING [None]
  - ARTHRALGIA [None]
  - DIABETES MELLITUS [None]
  - WEIGHT INCREASED [None]
  - PAIN [None]
